FAERS Safety Report 8910929 (Version 1)
Quarter: 2012Q4

REPORT INFORMATION
  Report Type: 
  Country: CA (occurrence: CA)
  Receive Date: 20121116
  Receipt Date: 20121116
  Transmission Date: 20130627
  Serious: Yes (Hospitalization, Other)
  Sender: FDA-Public Use
  Company Number: CA-ELI_LILLY_AND_COMPANY-CA201211002933

PATIENT
  Age: 93 Year
  Sex: Female

DRUGS (7)
  1. FORTEO [Suspect]
     Indication: OSTEOPOROSIS
     Dosage: 20 ug, qd
     Route: 058
     Dates: start: 20110531, end: 201210
  2. FORTEO [Suspect]
     Dosage: 20 ug, qd
     Route: 058
     Dates: start: 20121103
  3. CHLORPROPAMIDE [Concomitant]
     Dosage: UNK, unknown
     Route: 065
  4. ASPIRIN [Concomitant]
     Dosage: UNK, unknown
     Route: 065
  5. LIPITOR [Concomitant]
     Dosage: UNK, unknown
     Route: 065
  6. CARBOCAL D [Concomitant]
     Dosage: UNK, unknown
     Route: 065
  7. VITAMINS NOS [Concomitant]
     Dosage: UNK, unknown
     Route: 065

REACTIONS (2)
  - Hip fracture [Not Recovered/Not Resolved]
  - Fall [Unknown]
